FAERS Safety Report 6520339-3 (Version None)
Quarter: 2009Q4

REPORT INFORMATION
  Report Type: 
  Country: None (occurrence: None)
  Receive Date: 20091229
  Receipt Date: 20091214
  Transmission Date: 20100525
  Serious: Yes (Hospitalization)
  Sender: FDA-Public Use
  Company Number: ES-PFIZER INC-2009309477

PATIENT
  Age: 71 Year
  Sex: Female

DRUGS (2)
  1. ALDACTONE [Suspect]
     Dosage: 100 MG, DAILY
     Route: 048
     Dates: start: 20080101, end: 20090210
  2. TORSEMIDE [Interacting]
     Dosage: 10 MG, DAILY
     Route: 048
     Dates: start: 20080101, end: 20090210

REACTIONS (2)
  - DRUG INTERACTION [None]
  - RENAL FAILURE ACUTE [None]
